FAERS Safety Report 26190881 (Version 1)
Quarter: 2025Q4

REPORT INFORMATION
  Report Type: Spontaneous
  Country: US (occurrence: US)
  Receive Date: 20251223
  Receipt Date: 20251223
  Transmission Date: 20260118
  Serious: Yes (Hospitalization, Other)
  Sender: ALEMBIC
  Company Number: US-ALEMBIC PHARMACUETICALS LIMITED-2025SCAL001805

PATIENT

DRUGS (3)
  1. FLUOXETINE HYDROCHLORIDE [Suspect]
     Active Substance: FLUOXETINE HYDROCHLORIDE
     Indication: Depression
     Dosage: UNK
     Route: 065
  2. DOXEPIN HYDROCHLORIDE [Suspect]
     Active Substance: DOXEPIN HYDROCHLORIDE
     Indication: Depression
     Dosage: UNK
     Route: 065
  3. AMITRIPTYLINE HYDROCHLORIDE [Suspect]
     Active Substance: AMITRIPTYLINE HYDROCHLORIDE
     Indication: Depression
     Dosage: UNK
     Route: 065

REACTIONS (19)
  - Unresponsive to stimuli [Recovering/Resolving]
  - Toxicity to various agents [Recovering/Resolving]
  - Analgesic drug level increased [Recovering/Resolving]
  - Anhidrosis [Recovering/Resolving]
  - Urinary retention [Recovering/Resolving]
  - Pneumonia aspiration [Recovering/Resolving]
  - Sedation [Recovering/Resolving]
  - Overdose [Unknown]
  - Agitation [Recovered/Resolved]
  - Hyperthermia [Not Recovered/Not Resolved]
  - Hyperreflexia [Recovering/Resolving]
  - Clonus [Recovering/Resolving]
  - Autonomic nervous system imbalance [Recovering/Resolving]
  - Serotonin syndrome [Recovering/Resolving]
  - Hallucination, visual [Recovered/Resolved]
  - Mydriasis [Recovering/Resolving]
  - Hallucination, auditory [Recovered/Resolved]
  - Mental status changes [Recovering/Resolving]
  - Muscle rigidity [Recovering/Resolving]
